FAERS Safety Report 13511458 (Version 1)
Quarter: 2017Q2

REPORT INFORMATION
  Report Type: Spontaneous
  Country: FI (occurrence: FI)
  Receive Date: 20170504
  Receipt Date: 20170504
  Transmission Date: 20170830
  Serious: Yes (Hospitalization)
  Sender: FDA-Public Use
  Company Number: FI-ASPEN PHARMA TRADING LIMITED US-AG-2017-002919

PATIENT
  Age: 78 Year
  Sex: Male

DRUGS (9)
  1. LEUKERAN [Suspect]
     Active Substance: CHLORAMBUCIL
     Dosage: DURING THE SECOND CYCLE
     Route: 048
     Dates: start: 20161222
  2. GAZYVARO [Suspect]
     Active Substance: OBINUTUZUMAB
     Indication: LYMPHOCYTIC LYMPHOMA
     Route: 042
     Dates: start: 20161124
  3. GAZYVARO [Suspect]
     Active Substance: OBINUTUZUMAB
     Route: 042
     Dates: start: 20161208
  4. LEUKERAN [Suspect]
     Active Substance: CHLORAMBUCIL
     Dosage: DURING THE THIRD CYCLE, A REDUCED DOSE WAS ADMINISTERED.
     Route: 048
     Dates: start: 20170119
  5. GAZYVARO [Suspect]
     Active Substance: OBINUTUZUMAB
     Route: 042
     Dates: start: 20161201
  6. GAZYVARO [Suspect]
     Active Substance: OBINUTUZUMAB
     Dosage: DURING THE SECOND CYCLE
     Route: 042
     Dates: start: 20161222
  7. GAZYVARO [Suspect]
     Active Substance: OBINUTUZUMAB
     Dosage: DURING THE THIRD CYCLE
     Route: 042
     Dates: start: 20170119
  8. KALCIPOS-D [Concomitant]
     Active Substance: CALCIUM CARBONATE\CHOLECALCIFEROL
     Indication: PRODUCT USED FOR UNKNOWN INDICATION
     Route: 048
  9. LEUKERAN [Suspect]
     Active Substance: CHLORAMBUCIL
     Indication: LYMPHOCYTIC LYMPHOMA
     Route: 048
     Dates: start: 20161124

REACTIONS (9)
  - Drug eruption [Not Recovered/Not Resolved]
  - Lip blister [Not Recovered/Not Resolved]
  - Oral mucosal blistering [Recovering/Resolving]
  - Thrombocytopenia [Unknown]
  - Pain in extremity [Not Recovered/Not Resolved]
  - Oedema peripheral [Not Recovered/Not Resolved]
  - Erythema [Not Recovered/Not Resolved]
  - Oral disorder [Not Recovered/Not Resolved]
  - Dermatitis exfoliative [Not Recovered/Not Resolved]

NARRATIVE: CASE EVENT DATE: 20170119
